FAERS Safety Report 11780024 (Version 5)
Quarter: 2016Q1

REPORT INFORMATION
  Report Type: Report from Study
  Country: US (occurrence: US)
  Receive Date: 20151125
  Receipt Date: 20160209
  Transmission Date: 20160525
  Serious: Yes (Other)
  Sender: FDA-Public Use
  Company Number: US-UCBSA-2015037231

PATIENT
  Sex: Male
  Weight: 68.5 kg

DRUGS (4)
  1. LACOSAMIDE [Suspect]
     Active Substance: LACOSAMIDE
     Indication: SEIZURE
     Dosage: UNK
     Route: 048
     Dates: start: 201504, end: 2015
  2. LACOSAMIDE [Suspect]
     Active Substance: LACOSAMIDE
     Dosage: 100 MG, 2X/DAY (BID)
     Route: 048
     Dates: start: 2015, end: 201507
  3. LACOSAMIDE [Suspect]
     Active Substance: LACOSAMIDE
     Dosage: GRADUALLY INCREASING DOSE
     Route: 048
     Dates: start: 2015, end: 2015
  4. KEPPRA XR [Suspect]
     Active Substance: LEVETIRACETAM
     Indication: SEIZURE
     Dosage: 1500 MG, 2X/DAY (BID)
     Route: 048
     Dates: start: 2014

REACTIONS (7)
  - Malaise [Recovered/Resolved]
  - Chest pain [Recovered/Resolved]
  - Balance disorder [Recovered/Resolved]
  - Cardiac disorder [Recovered/Resolved]
  - Loss of consciousness [Recovered/Resolved]
  - Dizziness [Recovered/Resolved]
  - Off label use [Unknown]

NARRATIVE: CASE EVENT DATE: 2014
